FAERS Safety Report 7593963-7 (Version None)
Quarter: 2011Q3

REPORT INFORMATION
  Report Type: 
  Country: None (occurrence: None)
  Receive Date: 20110706
  Receipt Date: 20110622
  Transmission Date: 20111222
  Serious: Yes (Death)
  Sender: FDA-Public Use
  Company Number: ES-MYLANLABS-2011S1013010

PATIENT
  Age: 5 Year
  Sex: Male

DRUGS (1)
  1. ONDANSETRON [Suspect]
     Indication: VOMITING
     Route: 060

REACTIONS (1)
  - HYPERTHERMIA MALIGNANT [None]
